FAERS Safety Report 6558310-8 (Version None)
Quarter: 2010Q1

REPORT INFORMATION
  Report Type: 
  Country: None (occurrence: None)
  Receive Date: 20100129
  Receipt Date: 20100118
  Transmission Date: 20100710
  Serious: Yes (Hospitalization)
  Sender: FDA-Public Use
  Company Number: US-JNJFOC-20100101323

PATIENT
  Age: 60 Year
  Sex: Female
  Weight: 72.58 kg

DRUGS (3)
  1. TYLENOL (CAPLET) [Suspect]
     Route: 048
  2. TYLENOL (CAPLET) [Suspect]
     Indication: ARTHRALGIA
     Route: 048
  3. ALBUTEROL [Concomitant]

REACTIONS (6)
  - BRONCHITIS [None]
  - CHRONIC OBSTRUCTIVE PULMONARY DISEASE [None]
  - DIARRHOEA [None]
  - INCORRECT DOSE ADMINISTERED [None]
  - NAUSEA [None]
  - PRODUCT QUALITY ISSUE [None]
